FAERS Safety Report 9101811 (Version 1)
Quarter: 2013Q1

REPORT INFORMATION
  Report Type: Spontaneous
  Country: US (occurrence: US)
  Receive Date: 20130218
  Receipt Date: 20130218
  Transmission Date: 20140127
  Serious: Yes (Other)
  Sender: FDA-Public Use
  Company Number: US-PFIZER INC-2013058300

PATIENT
  Age: 51 Year
  Sex: Female
  Weight: 56.69 kg

DRUGS (23)
  1. ESTRING [Suspect]
     Indication: VULVOVAGINAL DRYNESS
     Dosage: UNK
     Route: 067
     Dates: start: 201302, end: 20130211
  2. ESTRING [Suspect]
     Indication: HORMONE REPLACEMENT THERAPY
  3. LEVOTHYROXINE [Concomitant]
     Indication: HYPOTHYROIDISM
     Dosage: 25 UG, UNK
  4. DETROL LA [Concomitant]
     Dosage: UNK
  5. LOTREL [Concomitant]
     Dosage: 5/20 MG, UNK
  6. NEURONTIN [Concomitant]
     Dosage: 300 MG, 3X/DAY
  7. TOPAMAX [Concomitant]
     Dosage: 50 MG, 2X/DAY
  8. PRILOSEC [Concomitant]
     Dosage: 20 MG, 2X/DAY
  9. MIRALAX [Concomitant]
     Dosage: UNK, AS NEEDED
  10. ALLEGRA [Concomitant]
     Dosage: 180 MG, AS NEEDED
  11. PYRIDIUM [Concomitant]
     Indication: BLADDER SPASM
     Dosage: UNK
  12. PRAVACHOL [Concomitant]
     Dosage: 40 MG, UNK
  13. RANEXA [Concomitant]
     Dosage: 500 MG, 2X/DAY
  14. IMDUR [Concomitant]
     Dosage: 60 MG, UNK
  15. NITROSTAT [Concomitant]
     Dosage: 0.4 MG, AS NEEDED
     Route: 060
  16. ALBUTEROL [Concomitant]
     Dosage: UNK
  17. SINGULAIR [Concomitant]
     Dosage: 10 MG, 1X/DAY
  18. FLEXERIL [Concomitant]
     Dosage: 10 MG, 3X/DAY
  19. VITAMIN D [Concomitant]
     Dosage: UNK
  20. VITAMIN B12 [Concomitant]
     Dosage: UNK
     Route: 060
  21. HYDROCODONE W/ACETAMINOPHEN [Concomitant]
     Dosage: UNK, 2X/DAY
  22. FLONASE [Concomitant]
     Dosage: UNK, 1X/DAY
     Route: 045
  23. DULERA [Concomitant]
     Dosage: UNK

REACTIONS (1)
  - Urinary tract infection [Not Recovered/Not Resolved]
